FAERS Safety Report 15940648 (Version 4)
Quarter: 2019Q2

REPORT INFORMATION
  Report Type: Spontaneous
  Country: US (occurrence: US)
  Receive Date: 20190208
  Receipt Date: 20190606
  Transmission Date: 20190711
  Serious: Yes (Other)
  Sender: FDA-Public Use
  Company Number: US-ASTRAZENECA-2018SF21652

PATIENT
  Age: 26395 Day
  Sex: Female

DRUGS (36)
  1. NEXIUM [Suspect]
     Active Substance: ESOMEPRAZOLE MAGNESIUM
     Indication: GASTROOESOPHAGEAL REFLUX DISEASE
     Dosage: 40.0MG UNKNOWN
     Route: 048
     Dates: start: 20110531
  2. HYDROCODONE-APAP [Concomitant]
     Active Substance: ACETAMINOPHEN\HYDROCODONE
  3. IBUPROFEN. [Concomitant]
     Active Substance: IBUPROFEN
  4. METHOCARBAMOL. [Concomitant]
     Active Substance: METHOCARBAMOL
  5. NEXIUM [Suspect]
     Active Substance: ESOMEPRAZOLE MAGNESIUM
     Indication: GASTROOESOPHAGEAL REFLUX DISEASE
     Dosage: GENERIC40.0MG UNKNOWN
     Route: 065
     Dates: start: 20160122, end: 20170922
  6. MELOXICAM. [Concomitant]
     Active Substance: MELOXICAM
  7. TRAMADOL. [Concomitant]
     Active Substance: TRAMADOL
  8. MISOPROSTOL. [Concomitant]
     Active Substance: MISOPROSTOL
  9. BISACODYL. [Concomitant]
     Active Substance: BISACODYL
  10. FUROSEMIDE. [Concomitant]
     Active Substance: FUROSEMIDE
  11. NEXIUM [Suspect]
     Active Substance: ESOMEPRAZOLE MAGNESIUM
     Indication: GASTROOESOPHAGEAL REFLUX DISEASE
     Dosage: UNKNOWN
     Route: 048
     Dates: start: 20110531
  12. DICLOFENAC [Concomitant]
     Active Substance: DICLOFENAC
  13. LEVAQUIN [Concomitant]
     Active Substance: LEVOFLOXACIN
  14. CYANOCOBALAMIN. [Concomitant]
     Active Substance: CYANOCOBALAMIN
  15. NEXIUM [Suspect]
     Active Substance: ESOMEPRAZOLE MAGNESIUM
     Indication: GASTROOESOPHAGEAL REFLUX DISEASE
     Dosage: UNKNOWN
     Route: 048
     Dates: start: 20110531, end: 20170307
  16. NEXIUM I.V. [Suspect]
     Active Substance: ESOMEPRAZOLE SODIUM
     Route: 042
     Dates: start: 20110531, end: 20170307
  17. PANTOPRAZOLE [Suspect]
     Active Substance: PANTOPRAZOLE
     Indication: GASTROOESOPHAGEAL REFLUX DISEASE
     Route: 065
     Dates: start: 20111206, end: 20130127
  18. CEPHALEXIN. [Concomitant]
     Active Substance: CEPHALEXIN
  19. OMEPRAZOLE. [Concomitant]
     Active Substance: OMEPRAZOLE
  20. GABAPENTIN. [Concomitant]
     Active Substance: GABAPENTIN
  21. CYCLOBENZAPRINE. [Concomitant]
     Active Substance: CYCLOBENZAPRINE
  22. ASPIRIN. [Concomitant]
     Active Substance: ASPIRIN
  23. OMEPRAZOLE. [Suspect]
     Active Substance: OMEPRAZOLE
     Indication: GASTROOESOPHAGEAL REFLUX DISEASE
     Route: 065
     Dates: start: 20100205, end: 20190202
  24. DIOVAN HCT [Concomitant]
     Active Substance: HYDROCHLOROTHIAZIDE\VALSARTAN
  25. SIMVASTATIN. [Concomitant]
     Active Substance: SIMVASTATIN
  26. DICYCLOMINE [Concomitant]
     Active Substance: DICYCLOMINE HYDROCHLORIDE
  27. NASONEX [Concomitant]
     Active Substance: MOMETASONE FUROATE
  28. PANTOPRAZOLE SODIUM. [Concomitant]
     Active Substance: PANTOPRAZOLE SODIUM
  29. FERROUS SULFATE. [Concomitant]
     Active Substance: FERROUS SULFATE
  30. COLCHICINE. [Concomitant]
     Active Substance: COLCHICINE
  31. CIPROFLOXACIN HYDROCHLORIDE. [Concomitant]
     Active Substance: CIPROFLOXACIN HYDROCHLORIDE
  32. NIFEDICAL XL [Concomitant]
     Active Substance: NIFEDIPINE
  33. KLOR-CON [Concomitant]
     Active Substance: POTASSIUM CHLORIDE
  34. CYMBALTA [Concomitant]
     Active Substance: DULOXETINE HYDROCHLORIDE
  35. ALPRAZOLAM. [Concomitant]
     Active Substance: ALPRAZOLAM
  36. CILOSTAZOL. [Concomitant]
     Active Substance: CILOSTAZOL

REACTIONS (2)
  - Renal injury [Unknown]
  - Chronic kidney disease [Not Recovered/Not Resolved]

NARRATIVE: CASE EVENT DATE: 20150101
